FAERS Safety Report 6069323-7 (Version None)
Quarter: 2009Q1

REPORT INFORMATION
  Report Type: 
  Country: None (occurrence: None)
  Receive Date: 20090206
  Receipt Date: 20090129
  Transmission Date: 20090719
  Serious: Yes (Hospitalization)
  Sender: FDA-Public Use
  Company Number: FR-PFIZER INC-2009163333

PATIENT

DRUGS (7)
  1. TAHOR [Suspect]
     Dosage: 10 MG, 1X/DAY
     Route: 048
     Dates: start: 20051201
  2. TRIATEC [Suspect]
     Dosage: 2.5 MG, 2X/DAY
     Route: 048
     Dates: start: 20070101, end: 20080725
  3. ISOPTIN [Concomitant]
     Dosage: UNK
     Dates: start: 20051201
  4. ODRIK [Concomitant]
     Dosage: UNK
     Dates: start: 20051201, end: 20070101
  5. PLAVIX [Concomitant]
     Dosage: UNK
     Dates: start: 20050701
  6. VENTOLIN [Concomitant]
     Dosage: UNK
  7. ATROVENT [Concomitant]
     Dosage: UNK

REACTIONS (1)
  - LUNG DISORDER [None]
